FAERS Safety Report 15315078 (Version 1)
Quarter: 2018Q3

REPORT INFORMATION
  Report Type: Spontaneous
  Country: US (occurrence: US)
  Receive Date: 20180824
  Receipt Date: 20180824
  Transmission Date: 20181010
  Serious: No
  Sender: FDA-Public Use
  Company Number: US-GLAXOSMITHKLINE-US2018GSK148176

PATIENT
  Age: 53 Year
  Sex: Female

DRUGS (1)
  1. NUCALA [Suspect]
     Active Substance: MEPOLIZUMAB
     Dosage: UNK, SINGLE

REACTIONS (5)
  - Dizziness [Unknown]
  - Feeling hot [Unknown]
  - Rash [Unknown]
  - Dyspnoea [Unknown]
  - Hypersensitivity [Unknown]

NARRATIVE: CASE EVENT DATE: 20180730
